FAERS Safety Report 8356350-X (Version None)
Quarter: 2012Q2

REPORT INFORMATION
  Report Type: 
  Country: None (occurrence: None)
  Receive Date: 20120514
  Receipt Date: 20120504
  Transmission Date: 20120825
  Serious: Yes (Hospitalization)
  Sender: FDA-Public Use
  Company Number: DE-UCBSA-052408

PATIENT
  Sex: Female

DRUGS (3)
  1. LEVETIRACETAM [Suspect]
  2. DEXAMETHASONE SODIUM PHOSPHATE [Concomitant]
  3. VIMPAT [Suspect]
     Dosage: WAS CURRENTLY TAPERED

REACTIONS (3)
  - RASH [None]
  - AGGRESSION [None]
  - APATHY [None]
